FAERS Safety Report 4822144-2 (Version None)
Quarter: 2005Q4

REPORT INFORMATION
  Report Type: 
  Country: None (occurrence: None)
  Receive Date: 20051103
  Receipt Date: 20051014
  Transmission Date: 20060501
  Serious: Yes (Other)
  Sender: FDA-Public Use
  Company Number: DE_051017224

PATIENT
  Age: 80 Year
  Sex: Female

DRUGS (3)
  1. CYMBALTA [Suspect]
     Indication: DEPRESSION
     Dosage: 60 MG
     Dates: start: 20050101
  2. LAMOTRIGINE [Concomitant]
  3. QUETIAPINE FUMARATE [Concomitant]

REACTIONS (1)
  - BUNDLE BRANCH BLOCK LEFT [None]
